FAERS Safety Report 7087146-7 (Version None)
Quarter: 2010Q4

REPORT INFORMATION
  Report Type: 
  Country: None (occurrence: None)
  Receive Date: 20101106
  Receipt Date: 20101102
  Transmission Date: 20110411
  Serious: No
  Sender: FDA-Public Use
  Company Number: US-WYE-H18527910

PATIENT
  Sex: Female
  Weight: 56.75 kg

DRUGS (6)
  1. EFFEXOR XR [Suspect]
     Indication: DEPRESSION
     Route: 065
     Dates: start: 20100101, end: 20101001
  2. EFFEXOR XR [Suspect]
     Indication: ANXIETY
     Route: 048
     Dates: start: 20101001
  3. EFFEXOR XR [Suspect]
     Indication: SEASONAL AFFECTIVE DISORDER
  4. DULOXETINE HYDROCHLORIDE [Concomitant]
  5. ZOLPIDEM TARTRATE [Concomitant]
  6. CLONAZEPAM [Concomitant]

REACTIONS (2)
  - COGNITIVE DISORDER [None]
  - SOMNOLENCE [None]
